FAERS Safety Report 6767908-3 (Version None)
Quarter: 2010Q2

REPORT INFORMATION
  Report Type: 
  Country: None (occurrence: None)
  Receive Date: 20100610
  Receipt Date: 20100525
  Transmission Date: 20101027
  Serious: No
  Sender: FDA-Public Use
  Company Number: 1-22764274

PATIENT
  Sex: Male

DRUGS (2)
  1. OXYMETAZOLINE HCL [Suspect]
     Indication: POLYPECTOMY
     Dosage: 1 SPRAY EACH NOSTRIL X 1 NASAL
     Route: 045
     Dates: start: 20100525, end: 20100525
  2. OXYMETAZOLINE HCL [Suspect]
     Indication: PREOPERATIVE CARE
     Dosage: 1 SPRAY EACH NOSTRIL X 1 NASAL
     Route: 045
     Dates: start: 20100525, end: 20100525

REACTIONS (1)
  - DYSURIA [None]
